FAERS Safety Report 4449989-5 (Version None)
Quarter: 2004Q3

REPORT INFORMATION
  Report Type: 
  Country: None (occurrence: None)
  Receive Date: 20040910
  Receipt Date: 20040601
  Transmission Date: 20050211
  Serious: Yes (Other)
  Sender: FDA-Public Use
  Company Number: S04-USA-03011-01

PATIENT
  Age: 38 Year
  Sex: Male

DRUGS (1)
  1. LEXAPRO [Suspect]
     Indication: DEPRESSION
     Dosage: 10 MG QD PO
     Route: 048
     Dates: start: 20040513, end: 20040522

REACTIONS (1)
  - ANAPHYLACTIC REACTION [None]
